FAERS Safety Report 6640314-8 (Version None)
Quarter: 2010Q1

REPORT INFORMATION
  Report Type: 
  Country: None (occurrence: None)
  Receive Date: 20100318
  Receipt Date: 20100310
  Transmission Date: 20100710
  Serious: Yes (Life-Threatening)
  Sender: FDA-Public Use
  Company Number: JP-JNJFOC-20100304448

PATIENT
  Age: 84 Year
  Sex: Male

DRUGS (3)
  1. CRAVIT [Suspect]
     Indication: PNEUMONIA
     Route: 048
  2. AMARYL [Suspect]
     Indication: DIABETES MELLITUS
     Route: 065
  3. VOGLIBOSE [Concomitant]
     Indication: DIABETES MELLITUS
     Route: 065

REACTIONS (2)
  - DRUG PRESCRIBING ERROR [None]
  - HYPOGLYCAEMIA [None]
